FAERS Safety Report 25216045 (Version 4)
Quarter: 2025Q2

REPORT INFORMATION
  Report Type: Spontaneous
  Country: US (occurrence: US)
  Receive Date: 20250418
  Receipt Date: 20250522
  Transmission Date: 20250716
  Serious: Yes (Other)
  Sender: ROCHE
  Company Number: US-ROCHE-10000253175

PATIENT
  Age: 81 Year
  Sex: Female

DRUGS (47)
  1. FARICIMAB-SVOA [Suspect]
     Active Substance: FARICIMAB-SVOA
     Indication: Neovascular age-related macular degeneration
     Route: 065
     Dates: start: 2023, end: 20240408
  2. FARICIMAB-SVOA [Suspect]
     Active Substance: FARICIMAB-SVOA
     Indication: Neovascular age-related macular degeneration
     Route: 065
     Dates: start: 20240408
  3. FARICIMAB-SVOA [Suspect]
     Active Substance: FARICIMAB-SVOA
     Route: 065
     Dates: start: 20231218
  4. FARICIMAB-SVOA [Suspect]
     Active Substance: FARICIMAB-SVOA
     Route: 065
     Dates: start: 20230927
  5. FARICIMAB-SVOA [Suspect]
     Active Substance: FARICIMAB-SVOA
     Route: 065
     Dates: start: 20230629
  6. FARICIMAB-SVOA [Suspect]
     Active Substance: FARICIMAB-SVOA
     Route: 065
     Dates: start: 20230406
  7. FARICIMAB-SVOA [Suspect]
     Active Substance: FARICIMAB-SVOA
     Route: 065
     Dates: start: 20221228
  8. FARICIMAB-SVOA [Suspect]
     Active Substance: FARICIMAB-SVOA
     Route: 065
     Dates: start: 20221005
  9. FARICIMAB-SVOA [Suspect]
     Active Substance: FARICIMAB-SVOA
     Route: 065
     Dates: start: 20220613
  10. FARICIMAB-SVOA [Suspect]
     Active Substance: FARICIMAB-SVOA
     Route: 065
     Dates: start: 20220518
  11. FARICIMAB-SVOA [Suspect]
     Active Substance: FARICIMAB-SVOA
     Route: 065
     Dates: start: 20220419
  12. FARICIMAB-SVOA [Suspect]
     Active Substance: FARICIMAB-SVOA
     Route: 065
     Dates: start: 20220216
  13. PREDNISONE [Concomitant]
     Active Substance: PREDNISONE
  14. LUCENTIS [Concomitant]
     Active Substance: RANIBIZUMAB
     Indication: Neovascular age-related macular degeneration
     Route: 065
  15. LUCENTIS [Concomitant]
     Active Substance: RANIBIZUMAB
  16. LUCENTIS [Concomitant]
     Active Substance: RANIBIZUMAB
  17. LUCENTIS [Concomitant]
     Active Substance: RANIBIZUMAB
  18. LUCENTIS [Concomitant]
     Active Substance: RANIBIZUMAB
  19. LUCENTIS [Concomitant]
     Active Substance: RANIBIZUMAB
  20. LUCENTIS [Concomitant]
     Active Substance: RANIBIZUMAB
  21. LUCENTIS [Concomitant]
     Active Substance: RANIBIZUMAB
  22. LUCENTIS [Concomitant]
     Active Substance: RANIBIZUMAB
  23. LUCENTIS [Concomitant]
     Active Substance: RANIBIZUMAB
  24. LUCENTIS [Concomitant]
     Active Substance: RANIBIZUMAB
  25. LUCENTIS [Concomitant]
     Active Substance: RANIBIZUMAB
  26. LUCENTIS [Concomitant]
     Active Substance: RANIBIZUMAB
  27. LUCENTIS [Concomitant]
     Active Substance: RANIBIZUMAB
  28. LUCENTIS [Concomitant]
     Active Substance: RANIBIZUMAB
  29. LUCENTIS [Concomitant]
     Active Substance: RANIBIZUMAB
  30. LUCENTIS [Concomitant]
     Active Substance: RANIBIZUMAB
  31. LUCENTIS [Concomitant]
     Active Substance: RANIBIZUMAB
  32. LUCENTIS [Concomitant]
     Active Substance: RANIBIZUMAB
  33. LUCENTIS [Concomitant]
     Active Substance: RANIBIZUMAB
  34. LUCENTIS [Concomitant]
     Active Substance: RANIBIZUMAB
  35. LUCENTIS [Concomitant]
     Active Substance: RANIBIZUMAB
  36. LUCENTIS [Concomitant]
     Active Substance: RANIBIZUMAB
  37. LUCENTIS [Concomitant]
     Active Substance: RANIBIZUMAB
  38. LUCENTIS [Concomitant]
     Active Substance: RANIBIZUMAB
  39. LUCENTIS [Concomitant]
     Active Substance: RANIBIZUMAB
  40. LUCENTIS [Concomitant]
     Active Substance: RANIBIZUMAB
  41. LUCENTIS [Concomitant]
     Active Substance: RANIBIZUMAB
  42. LUCENTIS [Concomitant]
     Active Substance: RANIBIZUMAB
  43. LUCENTIS [Concomitant]
     Active Substance: RANIBIZUMAB
  44. LUCENTIS [Concomitant]
     Active Substance: RANIBIZUMAB
  45. LUCENTIS [Concomitant]
     Active Substance: RANIBIZUMAB
  46. LUCENTIS [Concomitant]
     Active Substance: RANIBIZUMAB
  47. LUCENTIS [Concomitant]
     Active Substance: RANIBIZUMAB

REACTIONS (13)
  - Blindness [Not Recovered/Not Resolved]
  - Headache [Unknown]
  - Insomnia [Unknown]
  - Iris adhesions [Not Recovered/Not Resolved]
  - Rhinorrhoea [Unknown]
  - Endophthalmitis [Recovering/Resolving]
  - Neovascular age-related macular degeneration [Unknown]
  - Vitreous floaters [Unknown]
  - Visual impairment [Not Recovered/Not Resolved]
  - Hypopyon [Recovering/Resolving]
  - Pulmonary tuberculosis [Unknown]
  - Aphakia [Unknown]
  - Cataract [Unknown]

NARRATIVE: CASE EVENT DATE: 20240101
